FAERS Safety Report 17808990 (Version 2)
Quarter: 2020Q3

REPORT INFORMATION
  Report Type: Report from Study
  Country: BR (occurrence: BR)
  Receive Date: 20200520
  Receipt Date: 20200806
  Transmission Date: 20201102
  Serious: Yes (Death, Hospitalization, Other)
  Sender: FDA-Public Use
  Company Number: NVSC2020BR136979

PATIENT
  Age: 65 Year
  Sex: Male
  Weight: 45 kg

DRUGS (2)
  1. COSENTYX [Suspect]
     Active Substance: SECUKINUMAB
     Indication: PSORIASIS
     Dosage: UNK
     Route: 065
     Dates: start: 20190824
  2. COSENTYX [Suspect]
     Active Substance: SECUKINUMAB
     Dosage: UNK
     Route: 065
     Dates: start: 20200421

REACTIONS (11)
  - Hepatic cancer [Fatal]
  - Dyspnoea [Fatal]
  - Suspected COVID-19 [Fatal]
  - Pain [Recovering/Resolving]
  - Fatigue [Recovering/Resolving]
  - Abdominal pain upper [Recovering/Resolving]
  - Musculoskeletal chest pain [Fatal]
  - Feeding disorder [Recovering/Resolving]
  - Malaise [Fatal]
  - Asthenia [Recovering/Resolving]
  - Hypoacusis [Unknown]

NARRATIVE: CASE EVENT DATE: 202005
